FAERS Safety Report 20428048 (Version 1)
Quarter: 2022Q1

REPORT INFORMATION
  Report Type: Other
  Country: CA (occurrence: CA)
  Receive Date: 20220204
  Receipt Date: 20220204
  Transmission Date: 20220423
  Serious: Yes (Other)
  Sender: FDA-Public Use
  Company Number: CA-APOTEX-2022AP002833

PATIENT
  Age: 77 Year
  Sex: Male

DRUGS (2)
  1. AERIUS (DESLORATADINE) [Concomitant]
     Active Substance: DESLORATADINE
     Indication: Urticaria
     Dosage: 4 DOSAGE FORM, QD
     Route: 048
  2. CETIRIZINE HYDROCHLORIDE [Concomitant]
     Active Substance: CETIRIZINE HYDROCHLORIDE
     Indication: Hypersensitivity
     Dosage: 3 DOSAGE FORM, QD
     Route: 048

REACTIONS (2)
  - Suicidal behaviour [Unknown]
  - Pruritus [Unknown]
